FAERS Safety Report 7490715-3 (Version None)
Quarter: 2011Q2

REPORT INFORMATION
  Report Type: 
  Country: None (occurrence: None)
  Receive Date: 20110517
  Receipt Date: 20110517
  Transmission Date: 20111010
  Serious: Yes (Hospitalization)
  Sender: FDA-Public Use
  Company Number: None

PATIENT
  Sex: Female
  Weight: 68.0396 kg

DRUGS (1)
  1. LEVAQUIN [Suspect]
     Indication: PNEUMONIA LEGIONELLA
     Dates: start: 20101018, end: 20101125

REACTIONS (3)
  - PAIN IN EXTREMITY [None]
  - GAIT DISTURBANCE [None]
  - MUSCLE SPASMS [None]
